FAERS Safety Report 14779878 (Version 1)
Quarter: 2018Q2

REPORT INFORMATION
  Report Type: Spontaneous
  Country: US (occurrence: US)
  Receive Date: 20180419
  Receipt Date: 20180419
  Transmission Date: 20180711
  Serious: No
  Sender: FDA-Public Use
  Company Number: US-BAUSCH-BL-2017-021502

PATIENT
  Sex: Female
  Weight: 46.31 kg

DRUGS (6)
  1. CALCIUM/MAGNESIUM [Concomitant]
     Active Substance: CALCIUM\MAGNESIUM
     Indication: PRODUCT USED FOR UNKNOWN INDICATION
     Route: 048
  2. SYNTHROID [Concomitant]
     Active Substance: LEVOTHYROXINE SODIUM
     Indication: THYROID DISORDER
     Route: 048
  3. ARESTIN [Suspect]
     Active Substance: MINOCYCLINE HYDROCHLORIDE
     Indication: PERIODONTAL DISEASE
     Dosage: MULTIPLE PRIOR EXPOSURES TO ARESTIN (AT LEAST 3 TREATMENTS PRIOR TO THIS REPORT WITH ONE ADMINISTRAT
     Route: 050
  4. BONE MEAL SUPPLEMENT [Concomitant]
     Indication: PRODUCT USED FOR UNKNOWN INDICATION
     Route: 048
  5. ARESTIN [Suspect]
     Active Substance: MINOCYCLINE HYDROCHLORIDE
     Dosage: FOLLOWING POCKETS: 9,10,11,12,15,18,19, 21, 22, 23, AND 24 IN BOTH THE UPPER LEFT AND LOWER LEFT REG
     Route: 050
     Dates: start: 20170705, end: 20170705
  6. ARESTIN [Suspect]
     Active Substance: MINOCYCLINE HYDROCHLORIDE
     Dosage: FOLLOWING POCKETS: 2,6,7,8,25,27,27 AND 30 IN BOTH THE UPPER RIGHT AND LOWER RIGHT REGIONS
     Route: 050
     Dates: start: 20170628, end: 20170628

REACTIONS (1)
  - Urticaria [Recovering/Resolving]

NARRATIVE: CASE EVENT DATE: 20170708
